FAERS Safety Report 23057440 (Version 4)
Quarter: 2024Q1

REPORT INFORMATION
  Report Type: Spontaneous
  Country: US (occurrence: US)
  Receive Date: 20231012
  Receipt Date: 20240131
  Transmission Date: 20240410
  Serious: Yes (Other)
  Sender: FDA-Public Use
  Company Number: US-GLAXOSMITHKLINE-US2023135700

PATIENT

DRUGS (4)
  1. ZEJULA [Suspect]
     Active Substance: NIRAPARIB
     Indication: Ovarian cancer
     Dosage: 100 MG, QD
     Dates: start: 20230908
  2. ZEJULA [Suspect]
     Active Substance: NIRAPARIB
     Dosage: 100 MG, QD
     Route: 048
  3. ZEJULA [Suspect]
     Active Substance: NIRAPARIB
     Dosage: 100 MG, QD
  4. ZEJULA [Suspect]
     Active Substance: NIRAPARIB
     Dosage: 100 MG, QD

REACTIONS (13)
  - Neuropathy peripheral [Unknown]
  - Constipation [Unknown]
  - Insomnia [Unknown]
  - Coronavirus infection [Unknown]
  - Blood pressure increased [Unknown]
  - Nasal congestion [Unknown]
  - Ear pruritus [Unknown]
  - Ear infection [Unknown]
  - Contusion [Unknown]
  - Decreased appetite [Unknown]
  - Food intolerance [Unknown]
  - Sinusitis [Unknown]
  - Product dose omission issue [Unknown]
